FAERS Safety Report 4312227-8 (Version None)
Quarter: 2004Q1

REPORT INFORMATION
  Report Type: 
  Country: None (occurrence: None)
  Receive Date: 20040304
  Receipt Date: 20040304
  Transmission Date: 20041129
  Serious: No
  Sender: FDA-Public Use
  Company Number: None

PATIENT
  Age: 37 Year
  Sex: Male

DRUGS (1)
  1. ENGERIX-B [Suspect]
     Dosage: SE/IM
     Route: 030
     Dates: start: 20030325, end: 20031112

REACTIONS (1)
  - PAIN IN EXTREMITY [None]
